FAERS Safety Report 10860780 (Version 1)
Quarter: 2015Q1

REPORT INFORMATION
  Report Type: Report from Study
  Country: PT (occurrence: PT)
  Receive Date: 20150224
  Receipt Date: 20150224
  Transmission Date: 20150721
  Serious: Yes (Death, Life-Threatening, Hospitalization, Other)
  Sender: FDA-Public Use
  Company Number: PT-TAKEDA-2011-00988

PATIENT
  Age: 42 Year
  Sex: Male

DRUGS (13)
  1. LINEZOLID. [Concomitant]
     Active Substance: LINEZOLID
     Dosage: UNK
     Route: 065
     Dates: start: 20110305, end: 20110313
  2. DEXAMETHASONE. [Concomitant]
     Active Substance: DEXAMETHASONE
     Indication: PLASMA CELL MYELOMA
     Dosage: UNK
     Route: 065
     Dates: start: 20110214, end: 20110304
  3. MEROPENEM. [Concomitant]
     Active Substance: MEROPENEM
     Dosage: UNK
     Route: 065
     Dates: start: 20110223, end: 20110302
  4. PIPERACILLIN AND TAZOBACTAM [Concomitant]
     Active Substance: PIPERACILLIN SODIUM\TAZOBACTAM SODIUM
     Dosage: UNK
     Route: 065
     Dates: start: 20110304, end: 20110310
  5. ACICLOVIR [Concomitant]
     Active Substance: ACYCLOVIR
     Dosage: UNK
     Route: 065
     Dates: start: 20110309, end: 20110315
  6. ERYTHROMYCIN. [Concomitant]
     Active Substance: ERYTHROMYCIN
     Dosage: UNK
     Route: 065
     Dates: start: 20110311, end: 20110315
  7. VELCADE [Suspect]
     Active Substance: BORTEZOMIB
     Indication: PLASMA CELL MYELOMA
     Dosage: UNK
     Route: 065
     Dates: start: 20110228, end: 20110304
  8. DARBEPOETIN ALFA [Concomitant]
     Active Substance: DARBEPOETIN ALFA
     Dosage: UNK
     Route: 065
     Dates: start: 20110215, end: 20110315
  9. HEPARIN [Concomitant]
     Active Substance: HEPARIN SODIUM
     Dosage: UNK
     Route: 065
     Dates: start: 20110304, end: 20110307
  10. AMIKACIN [Concomitant]
     Active Substance: AMIKACIN
     Dosage: UNK
     Route: 065
     Dates: start: 20110304, end: 20110305
  11. ENOXAPARIN [Concomitant]
     Active Substance: ENOXAPARIN
     Dosage: UNK
     Route: 065
     Dates: start: 20110304
  12. FLUCONAZOLE. [Concomitant]
     Active Substance: FLUCONAZOLE
     Dosage: UNK
     Route: 065
     Dates: start: 20110307, end: 20110314
  13. HEPARIN [Concomitant]
     Active Substance: HEPARIN SODIUM
     Dosage: UNK
     Route: 065
     Dates: start: 20110215, end: 20110221

REACTIONS (2)
  - Respiratory arrest [Not Recovered/Not Resolved]
  - Multi-organ failure [Fatal]

NARRATIVE: CASE EVENT DATE: 201103
